FAERS Safety Report 10967912 (Version 1)
Quarter: 2015Q1

REPORT INFORMATION
  Report Type: Spontaneous
  Country: GB (occurrence: GB)
  Receive Date: 20150330
  Receipt Date: 20150330
  Transmission Date: 20150721
  Serious: Yes (Other)
  Sender: FDA-Public Use
  Company Number: GB-GLAXOSMITHKLINE-GB2015GSK040623

PATIENT
  Sex: Female

DRUGS (1)
  1. PROPAFENONE. [Suspect]
     Active Substance: PROPAFENONE
     Dosage: 150 MG, UNK

REACTIONS (5)
  - Visual impairment [Unknown]
  - Dysphagia [Unknown]
  - Surgery [Unknown]
  - Product substitution issue [Unknown]
  - Suspected counterfeit product [Unknown]
